FAERS Safety Report 7376748-6 (Version None)
Quarter: 2011Q1

REPORT INFORMATION
  Report Type: 
  Country: None (occurrence: None)
  Receive Date: 20110325
  Receipt Date: 20110318
  Transmission Date: 20110831
  Serious: Yes (Hospitalization)
  Sender: FDA-Public Use
  Company Number: US-B.I. PHARMACEUTICALS,INC./RIDGEFIELD-2011-BP-04745BP

PATIENT
  Sex: Male

DRUGS (14)
  1. ALLOPURINOL [Concomitant]
     Dosage: 300 MG
     Route: 048
  2. LOSARTAN POTASSIUM [Concomitant]
     Indication: HYPERTENSION
     Route: 048
  3. TRENTAL [Concomitant]
  4. VITAMIN D [Concomitant]
     Route: 048
  5. COLCHICINE [Concomitant]
     Indication: GOUT
     Route: 048
  6. ZOCOR [Concomitant]
     Route: 048
  7. ASPIRIN [Concomitant]
     Indication: CORONARY ARTERY DISEASE
     Dosage: 81 MG
     Route: 048
     Dates: end: 20110216
  8. PAXIL [Concomitant]
     Dosage: 20 MG
  9. METOPROLOL [Concomitant]
  10. PRADAXA [Suspect]
     Indication: ATRIAL FIBRILLATION
     Dosage: 300 MG
     Route: 048
     Dates: start: 20110205, end: 20110216
  11. ZANTAC [Concomitant]
     Dosage: 300 MG
  12. UROXATROL [Concomitant]
     Indication: BENIGN PROSTATIC HYPERPLASIA
     Dosage: 10 MG
     Route: 048
  13. LOPRESSOR [Concomitant]
     Dosage: 25 MG
  14. MIRALAX [Concomitant]
     Route: 048

REACTIONS (16)
  - DIZZINESS [None]
  - MELAENA [None]
  - MUSCLE SPASMS [None]
  - GASTRIC MUCOSAL LESION [None]
  - ASTHENIA [None]
  - PALLOR [None]
  - HYPOTENSION [None]
  - DECREASED APPETITE [None]
  - GASTROINTESTINAL HAEMORRHAGE [None]
  - RENAL FAILURE [None]
  - CONTUSION [None]
  - BACK PAIN [None]
  - ANAEMIA [None]
  - DYSPNOEA [None]
  - ABDOMINAL PAIN [None]
  - THROMBOCYTOPENIA [None]
